FAERS Safety Report 9272298 (Version 1)
Quarter: 2013Q2

REPORT INFORMATION
  Report Type: Spontaneous
  Country: US (occurrence: US)
  Receive Date: 20130506
  Receipt Date: 20130506
  Transmission Date: 20140414
  Serious: No
  Sender: FDA-Public Use
  Company Number: US-ASTRAZENECA-2013SE23833

PATIENT
  Age: 76 Year
  Sex: Female

DRUGS (1)
  1. PRILOSEC OTC [Suspect]
     Route: 048

REACTIONS (6)
  - Muscle twitching [Unknown]
  - Increased upper airway secretion [Unknown]
  - Dysphonia [Unknown]
  - Muscle spasms [Recovered/Resolved]
  - Gastric disorder [Not Recovered/Not Resolved]
  - Diarrhoea [Unknown]
